FAERS Safety Report 13462949 (Version 1)
Quarter: 2017Q2

REPORT INFORMATION
  Report Type: Spontaneous
  Country: FR (occurrence: FR)
  Receive Date: 20170420
  Receipt Date: 20170420
  Transmission Date: 20170830
  Serious: Yes (Hospitalization)
  Sender: FDA-Public Use
  Company Number: FR-PFIZER INC-2017167044

PATIENT
  Age: 81 Year
  Sex: Male
  Weight: 73 kg

DRUGS (17)
  1. ZYDELIG [Suspect]
     Active Substance: IDELALISIB
     Dosage: 150 MG, 2X/DAY (ON THE MORNING AND ON THE EVENING)
     Route: 048
     Dates: start: 20170322, end: 20170322
  2. CRESTOR [Concomitant]
     Active Substance: ROSUVASTATIN CALCIUM
     Dosage: 5 MG, 1X/DAY (ON THE EVENING)
  3. ZYDELIG [Suspect]
     Active Substance: IDELALISIB
     Dosage: 150 MG, 2X/DAY (ON THE MORNING AND ON THE EVENING, CYCLE 4 DAY 1)
     Route: 048
     Dates: start: 20170315, end: 20170315
  4. ZYDELIG [Suspect]
     Active Substance: IDELALISIB
     Dosage: 150 MG, 2X/DAY (ON THE MORNING AND ON THE EVENING, CYCLE 3 DAY 1)
     Route: 048
     Dates: start: 20170215, end: 20170215
  5. BACTRIM [Suspect]
     Active Substance: SULFAMETHOXAZOLE\TRIMETHOPRIM
     Indication: PROPHYLAXIS
     Dosage: 3 DF, WEEKLY
     Route: 048
     Dates: start: 20161221
  6. LASILIX /00032601/ [Concomitant]
     Active Substance: FUROSEMIDE
     Dosage: 20 MG, DAILY (ON THE MORNING)
     Dates: start: 2013
  7. PRIMPERAN [Concomitant]
     Active Substance: METOCLOPRAMIDE HYDROCHLORIDE
     Dosage: 10 MG, 3X/DAY IF NAUSEA
  8. ZYDELIG [Suspect]
     Active Substance: IDELALISIB
     Indication: CHRONIC LYMPHOCYTIC LEUKAEMIA
     Dosage: 150 MG, 2X/DAY (ON THE MORNING AND ON THE EVENING, CYCLE 1 DAY 1)
     Route: 048
     Dates: start: 20161221, end: 20161221
  9. ZYDELIG [Suspect]
     Active Substance: IDELALISIB
     Dosage: 150 MG, 2X/DAY (ON THE MORNING AND ON THE EVENING, CYCLE 2 DAY 1)
     Route: 048
     Dates: start: 20170118, end: 20170118
  10. CORDARONE [Concomitant]
     Active Substance: AMIODARONE HYDROCHLORIDE
     Dosage: 200 MG, DAILY (ON THE MORNING)
     Dates: start: 2013
  11. LEDERFOLINE [Concomitant]
     Active Substance: LEUCOVORIN CALCIUM
     Indication: PROPHYLAXIS
     Dosage: ONE TABLET 3 TIMES A WEEK
     Dates: start: 20161221
  12. LOPERAMIDE [Concomitant]
     Active Substance: LOPERAMIDE
     Indication: PLATELET AGGREGATION
     Dosage: 1 DF,  8 TIMES A DAY MAXIMUM
  13. RITUXIMAB [Concomitant]
     Active Substance: RITUXIMAB
     Indication: CHRONIC LYMPHOCYTIC LEUKAEMIA
     Dosage: UNK UNK, CYCLIC
     Dates: start: 20161221
  14. TAZOCILLINE [Suspect]
     Active Substance: PIPERACILLIN SODIUM\TAZOBACTAM SODIUM
     Indication: PROPHYLAXIS
     Dosage: UNK
     Route: 042
     Dates: end: 20170315
  15. ZELITREX [Suspect]
     Active Substance: VALACYCLOVIR HYDROCHLORIDE
     Indication: PROPHYLAXIS
     Dosage: 500 MG, 2X/DAY (ON THE MORNING AND ON THE EVENING)
     Route: 048
     Dates: start: 20161221
  16. KARDEGIC [Concomitant]
     Active Substance: ASPIRIN LYSINE
     Dosage: 1 DF, DAILY (ON THE MORNING )
     Dates: start: 2013
  17. INEXIUM /01479302/ [Concomitant]
     Active Substance: ESOMEPRAZOLE MAGNESIUM
     Dosage: 20 MG, DAILY

REACTIONS (6)
  - Diarrhoea [Recovered/Resolved]
  - Vomiting [Recovered/Resolved]
  - Pyrexia [Recovered/Resolved]
  - Nausea [Recovered/Resolved]
  - Abdominal pain [Recovered/Resolved]
  - Colitis [Recovered/Resolved]

NARRATIVE: CASE EVENT DATE: 201703
